FAERS Safety Report 16881964 (Version 1)
Quarter: 2019Q4

REPORT INFORMATION
  Report Type: Spontaneous
  Country: US (occurrence: US)
  Receive Date: 20191003
  Receipt Date: 20191003
  Transmission Date: 20200122
  Serious: No
  Sender: FDA-Public Use
  Company Number: US-JNJFOC-20190934948

PATIENT
  Sex: Male

DRUGS (5)
  1. EFFEXOR [Concomitant]
     Active Substance: VENLAFAXINE HYDROCHLORIDE
  2. SPRAVATO [Suspect]
     Active Substance: ESKETAMINE
     Indication: DEPRESSION
  3. ABILIFY [Concomitant]
     Active Substance: ARIPIPRAZOLE
  4. SINEMET [Concomitant]
     Active Substance: CARBIDOPA\LEVODOPA
  5. LITHIUM. [Concomitant]
     Active Substance: LITHIUM

REACTIONS (1)
  - Musculoskeletal stiffness [Unknown]
